FAERS Safety Report 10862871 (Version 3)
Quarter: 2015Q2

REPORT INFORMATION
  Report Type: Report from Study
  Country: CA (occurrence: CA)
  Receive Date: 20150223
  Receipt Date: 20150605
  Transmission Date: 20150821
  Serious: Yes (Other)
  Sender: FDA-Public Use
  Company Number: CA-AMGEN-CANSL2014081742

PATIENT
  Age: 74 Year
  Sex: Female

DRUGS (7)
  1. COUMADIN [Concomitant]
     Active Substance: WARFARIN SODIUM
     Dosage: UNK
  2. CORTISONE [Concomitant]
     Active Substance: CORTISONE\HYDROCORTISONE
     Dosage: UNK
  3. CYMBALTA [Concomitant]
     Active Substance: DULOXETINE HYDROCHLORIDE
     Dosage: UNK
  4. TYLENOL [Concomitant]
     Active Substance: ACETAMINOPHEN
     Dosage: UNK
  5. BISOPROLOL [Concomitant]
     Active Substance: BISOPROLOL
     Indication: BLOOD PRESSURE ABNORMAL
     Dosage: UNK
  6. PROLIA [Suspect]
     Active Substance: DENOSUMAB
     Indication: OSTEOPOROSIS POSTMENOPAUSAL
     Dosage: 60 MG, Q6MO
     Route: 058
     Dates: start: 20140922
  7. VITAMIN D                          /00107901/ [Concomitant]
     Active Substance: ERGOCALCIFEROL
     Dosage: UNK UNK, QWK

REACTIONS (3)
  - Tooth abscess [Unknown]
  - Blood disorder [Not Recovered/Not Resolved]
  - International normalised ratio fluctuation [Not Recovered/Not Resolved]
